FAERS Safety Report 5723235-4 (Version None)
Quarter: 2008Q2

REPORT INFORMATION
  Report Type: 
  Country: None (occurrence: None)
  Receive Date: 20080430
  Receipt Date: 20080211
  Transmission Date: 20081010
  Serious: Yes (Other)
  Sender: FDA-Public Use
  Company Number: US-ASTRAZENECA-2008UW02840

PATIENT
  Age: 68 Year
  Sex: Male
  Weight: 98.9 kg

DRUGS (4)
  1. NEXIUM [Suspect]
     Indication: DIVERTICULITIS OESOPHAGEAL
     Route: 048
     Dates: start: 20070501
  2. PROPOXYPHENE HYDROCHLORIDE [Concomitant]
  3. PREDNISONE [Concomitant]
  4. BLOOD PRESSURE CAPSULE [Concomitant]

REACTIONS (5)
  - ABDOMINAL DISTENSION [None]
  - ABDOMINAL PAIN UPPER [None]
  - DRUG INEFFECTIVE [None]
  - FLATULENCE [None]
  - VISION BLURRED [None]
